FAERS Safety Report 15734292 (Version 1)
Quarter: 2018Q4

REPORT INFORMATION
  Report Type: Spontaneous
  Country: GB (occurrence: GB)
  Receive Date: 20181218
  Receipt Date: 20181218
  Transmission Date: 20190205
  Serious: Yes (Other)
  Sender: FDA-Public Use
  Company Number: GB-PFIZER INC-19304

PATIENT
  Sex: Male

DRUGS (18)
  1. CLEXANE [Concomitant]
     Active Substance: ENOXAPARIN SODIUM
     Dosage: 80 MG, 1X/DAY
     Route: 058
  2. OXALIPLATIN. [Suspect]
     Active Substance: OXALIPLATIN
     Dosage: UNK
  3. SEREVENT DISKUS [Concomitant]
     Active Substance: SALMETEROL XINAFOATE
     Dosage: 1 DF, 1X/DAY
  4. VITAMIN B COMPLEX [Concomitant]
     Active Substance: CYANOCOBALAMIN\DEXPANTHENOL\NIACINAMIDE\PYRIDOXINE HYDROCHLORIDE\RIBOFLAVIN 5^-PHOSPHATE SODIUM\THIAMINE HYDROCHLORIDE\VITAMIN B COMPLEX
     Dosage: 1 DF, 1X/DAY
     Route: 048
  5. UFTORAL [Suspect]
     Active Substance: TEGAFUR\URACIL
     Dosage: 5 DF, 1X/DAY (5 DOSAGE FORMS)
     Route: 048
     Dates: start: 20080411
  6. PREDNISOLONE. [Concomitant]
     Active Substance: PREDNISOLONE
     Dosage: 5 MG, 1X/DAY
     Route: 048
  7. ORAMORPH [Concomitant]
     Active Substance: MORPHINE SULFATE
     Dosage: 10 MG, UNK
  8. ZOTON [Concomitant]
     Active Substance: LANSOPRAZOLE
     Dosage: 30 MG, 1X/DAY
  9. METOCLOPRAMIDE. [Concomitant]
     Active Substance: METOCLOPRAMIDE
     Dosage: 10 MG, 1X/DAY
     Route: 048
  10. FILAIR [Concomitant]
     Dosage: 1 DF, 1X/DAY
  11. MOVICOL [Concomitant]
     Active Substance: POLYETHYLENE GLYCOL 3350\POTASSIUM CHLORIDE\SODIUM BICARBONATE\SODIUM CHLORIDE
     Dosage: UNK
  12. ATROVENT [Concomitant]
     Active Substance: IPRATROPIUM BROMIDE
     Dosage: 1 DF, 1X/DAY
  13. PARACETAMOL [Concomitant]
     Active Substance: ACETAMINOPHEN
     Dosage: 500 MG, 1X/DAY
     Route: 048
  14. AMIODARONE [Concomitant]
     Active Substance: AMIODARONE
     Dosage: 200 MG, 1X/DAY
     Route: 048
  15. PROPANTHELINE [Concomitant]
     Active Substance: PROPANTHELINE
     Dosage: 15 MG, 1X/DAY
     Route: 048
  16. DOCUSATE [Concomitant]
     Active Substance: DOCUSATE
     Dosage: 1 DF, 1X/DAY
     Route: 048
  17. SALBUTAMOL [Concomitant]
     Active Substance: ALBUTEROL
     Dosage: 1 DF, 1X/DAY
  18. MORPHINE SULPHATE [Concomitant]
     Active Substance: MORPHINE SULFATE
     Dosage: 40 MG, 1X/DAY

REACTIONS (3)
  - Muscle spasms [Recovering/Resolving]
  - Neuropathy peripheral [Not Recovered/Not Resolved]
  - Discomfort [Recovering/Resolving]

NARRATIVE: CASE EVENT DATE: 20080423
